FAERS Safety Report 7571785-0 (Version None)
Quarter: 2011Q2

REPORT INFORMATION
  Report Type: 
  Country: None (occurrence: None)
  Receive Date: 20110624
  Receipt Date: 20110608
  Transmission Date: 20111010
  Serious: No
  Sender: FDA-Public Use
  Company Number: US-B.I. PHARMACEUTICALS,INC./RIDGEFIELD-2011-BP-08846BP

PATIENT
  Age: 87 Year
  Sex: Female
  Weight: 73.48 kg

DRUGS (7)
  1. POTASSIUM [Concomitant]
     Indication: SUPPLEMENTATION THERAPY
     Dosage: 10 MEQ
  2. ASPIRIN [Concomitant]
  3. TOPROL-XL [Concomitant]
     Indication: HYPERTENSION
     Dosage: 50 MG
  4. LASIX [Concomitant]
     Indication: HYPERTENSION
     Dosage: 40 MG
  5. VITAMIN TAB [Concomitant]
  6. PRADAXA [Suspect]
     Indication: ATRIAL FIBRILLATION
     Dosage: 300 MG
     Route: 048
     Dates: start: 20110203, end: 20110320
  7. MIRALAX [Concomitant]

REACTIONS (3)
  - CONFUSIONAL STATE [None]
  - DELUSION [None]
  - MEMORY IMPAIRMENT [None]
